FAERS Safety Report 9733180 (Version 2)
Quarter: 2013Q4

REPORT INFORMATION
  Report Type: Spontaneous
  Country: US (occurrence: US)
  Receive Date: 20131204
  Receipt Date: 20131210
  Transmission Date: 20140711
  Serious: No
  Sender: FDA-Public Use
  Company Number: US-GILEAD-2013-0088942

PATIENT
  Age: 39 Year
  Sex: Female

DRUGS (8)
  1. LETAIRIS [Suspect]
     Indication: PULMONARY ARTERIAL HYPERTENSION
     Dosage: 10 MG, QD
     Dates: start: 20121021
  2. VELETRI [Concomitant]
  3. ADCIRCA [Concomitant]
  4. FUROSEMIDE [Concomitant]
  5. POTASSIUM [Concomitant]
  6. NEXIUM                             /01479302/ [Concomitant]
  7. LEVOTHYROXINE [Concomitant]
  8. SPIRONOLACTONE [Concomitant]

REACTIONS (2)
  - Rash [Unknown]
  - Headache [Unknown]
